FAERS Safety Report 4611457-5 (Version None)
Quarter: 2005Q2

REPORT INFORMATION
  Report Type: 
  Country: None (occurrence: None)
  Receive Date: 20050311
  Receipt Date: 20041116
  Transmission Date: 20051028
  Serious: No
  Sender: FDA-Public Use
  Company Number: 2004-BP-11979BP

PATIENT
  Sex: Male

DRUGS (6)
  1. SPIRIVA [Suspect]
     Indication: CHRONIC OBSTRUCTIVE PULMONARY DISEASE
     Dosage: 18 MCG 1/DAY (18 MCG), IH
     Route: 055
     Dates: start: 20041111
  2. SPIRIVA [Suspect]
  3. HUMULIN R INSULIN (INSULIN HUMAN) [Concomitant]
  4. HUMULIN N INSULIN (INSULIN HUMAN INJECTION, ISOPHANE) [Concomitant]
  5. BABY ASPIRIN (ACETYLSALCYLIC ACID) [Concomitant]
  6. LIPITOR [Concomitant]

REACTIONS (2)
  - BLOOD GLUCOSE DECREASED [None]
  - MUSCLE TWITCHING [None]
